FAERS Safety Report 7253493-9 (Version None)
Quarter: 2011Q1

REPORT INFORMATION
  Report Type: 
  Country: None (occurrence: None)
  Receive Date: 20110129
  Receipt Date: 20100217
  Transmission Date: 20110831
  Serious: No
  Sender: FDA-Public Use
  Company Number: US-ABBOTT-10P-163-0627251-00

PATIENT
  Sex: Female
  Weight: 61.29 kg

DRUGS (3)
  1. CORTISONE [Concomitant]
     Indication: ADDISON'S DISEASE
  2. SYNTHROID [Concomitant]
     Indication: ADDISON'S DISEASE
  3. HUMIRA [Suspect]
     Indication: CROHN'S DISEASE
     Dosage: DAY 29
     Dates: start: 20100118

REACTIONS (3)
  - INJECTION SITE PRURITUS [None]
  - INJECTION SITE URTICARIA [None]
  - OROPHARYNGEAL BLISTERING [None]
